FAERS Safety Report 4703091-3 (Version None)
Quarter: 2005Q2

REPORT INFORMATION
  Report Type: 
  Country: None (occurrence: None)
  Receive Date: 20050628
  Receipt Date: 20050628
  Transmission Date: 20051028
  Serious: Yes (Hospitalization, Other)
  Sender: FDA-Public Use
  Company Number: None

PATIENT
  Age: 86 Year
  Sex: Female
  Weight: 72.5755 kg

DRUGS (1)
  1. VIOXX [Suspect]
     Indication: PARKINSON'S DISEASE
     Dosage: TAKE 1 TAB EVERY DAY ORAL
     Route: 048
     Dates: start: 20031006, end: 20040302

REACTIONS (3)
  - CARDIAC FAILURE [None]
  - CEREBROVASCULAR ACCIDENT [None]
  - GASTRIC ULCER [None]
